FAERS Safety Report 18716656 (Version 11)
Quarter: 2023Q2

REPORT INFORMATION
  Report Type: Report from Study
  Country: US (occurrence: US)
  Receive Date: 20210108
  Receipt Date: 20230620
  Transmission Date: 20230722
  Serious: Yes (Other)
  Sender: FDA-Public Use
  Company Number: US-MERCK KGAA-9040845

PATIENT
  Age: 48 Year
  Sex: Female

DRUGS (1)
  1. REBIF [Suspect]
     Active Substance: INTERFERON BETA-1A
     Indication: Multiple sclerosis
     Route: 058
     Dates: start: 20180620, end: 20210105

REACTIONS (25)
  - Musculoskeletal stiffness [Unknown]
  - Hypokinesia [Unknown]
  - Dry skin [Unknown]
  - Lip swelling [Not Recovered/Not Resolved]
  - Swelling face [Not Recovered/Not Resolved]
  - Mobility decreased [Unknown]
  - Joint stiffness [Unknown]
  - Hypoaesthesia [Unknown]
  - Condition aggravated [Unknown]
  - Hypovitaminosis [Unknown]
  - Musculoskeletal disorder [Unknown]
  - Pain [Unknown]
  - Tooth loss [Unknown]
  - Fall [Unknown]
  - Head injury [Unknown]
  - Contusion [Unknown]
  - Back pain [Unknown]
  - Acne [Unknown]
  - COVID-19 [Unknown]
  - Weight increased [Unknown]
  - Visual impairment [Unknown]
  - Stress [Unknown]
  - Arthralgia [Unknown]
  - Product administration interrupted [Unknown]
  - Intentional product use issue [Unknown]

NARRATIVE: CASE EVENT DATE: 20180101
